FAERS Safety Report 11157823 (Version 1)
Quarter: 2015Q2

REPORT INFORMATION
  Report Type: Spontaneous
  Country: US (occurrence: None)
  Receive Date: 20150601
  Receipt Date: 20150601
  Transmission Date: 20150821
  Serious: Yes (Hospitalization)
  Sender: FDA-Public Use
  Company Number: 1224850-2015-00034

PATIENT
  Sex: Male
  Weight: 92.99 kg

DRUGS (9)
  1. ECTORIN [Concomitant]
  2. PHOSLO [Suspect]
     Active Substance: CALCIUM ACETATE
     Indication: RENAL FAILURE
     Dosage: 2 CAPS PO TID
     Route: 048
  3. NEPHRO-VITE [Concomitant]
  4. ACCUPRIL [Concomitant]
     Active Substance: QUINAPRIL HYDROCHLORIDE
  5. PREVACID [Concomitant]
     Active Substance: LANSOPRAZOLE
  6. RENAGEL 3CAPS [Concomitant]
  7. LOPRESSOR [Concomitant]
     Active Substance: METOPROLOL TARTRATE
  8. TUMS [Concomitant]
     Active Substance: CALCIUM CARBONATE
  9. DARVOCET-N 100 [Concomitant]
     Active Substance: ACETAMINOPHEN\PROPOXYPHENE NAPSYLATE

REACTIONS (2)
  - Disease recurrence [None]
  - Pancreatitis [None]

NARRATIVE: CASE EVENT DATE: 20040602
